FAERS Safety Report 5824311-8 (Version None)
Quarter: 2008Q3

REPORT INFORMATION
  Report Type: 
  Country: None (occurrence: None)
  Receive Date: 20080728
  Receipt Date: 20080717
  Transmission Date: 20090109
  Serious: Yes (Hospitalization)
  Sender: FDA-Public Use
  Company Number: FR-AVENTIS-200618212GDDC

PATIENT
  Age: 57 Year
  Sex: Female

DRUGS (7)
  1. DOCETAXEL [Suspect]
     Indication: BREAST CANCER
     Route: 042
     Dates: start: 20060710, end: 20060710
  2. TOPALGIC [Suspect]
     Dates: start: 20060716
  3. BEVACIZUMAB [Suspect]
     Indication: BREAST CANCER
     Dosage: DOSE: 735 MG
     Route: 042
     Dates: start: 20060710, end: 20060710
  4. BEVACIZUMAB [Suspect]
  5. PRAZEPAM [Concomitant]
  6. ALBUTEROL [Concomitant]
  7. BUDESONIDE/FORMOTEROL [Concomitant]

REACTIONS (3)
  - CONSTIPATION [None]
  - HEPATIC PAIN [None]
  - NEUTROPENIA [None]
